FAERS Safety Report 19414930 (Version 1)
Quarter: 2021Q2

REPORT INFORMATION
  Report Type: Spontaneous
  Country: CA (occurrence: CA)
  Receive Date: 20210614
  Receipt Date: 20210614
  Transmission Date: 20210717
  Serious: Yes (Hospitalization)
  Sender: FDA-Public Use
  Company Number: CA-MYLANLABS-2021M1034564

PATIENT
  Sex: Female
  Weight: 60 kg

DRUGS (1)
  1. OGIVRI [Suspect]
     Active Substance: TRASTUZUMAB-DKST
     Indication: BREAST CANCER METASTATIC
     Dosage: UNK
     Dates: start: 20210517

REACTIONS (1)
  - Hospitalisation [Unknown]
